FAERS Safety Report 19010432 (Version 1)
Quarter: 2021Q1

REPORT INFORMATION
  Report Type: Report from Study
  Country: BR (occurrence: BR)
  Receive Date: 20210315
  Receipt Date: 20210315
  Transmission Date: 20210420
  Serious: Yes (Death, Other)
  Sender: FDA-Public Use
  Company Number: NVSC2020BR179988

PATIENT
  Age: 42 Year
  Sex: Male

DRUGS (1)
  1. VOTRIENT [Suspect]
     Active Substance: PAZOPANIB HYDROCHLORIDE
     Indication: RENAL CANCER METASTATIC
     Dosage: 2 DF, QD
     Route: 048
     Dates: start: 20200207, end: 202009

REACTIONS (11)
  - Haematemesis [Recovering/Resolving]
  - Bone erosion [Unknown]
  - Malaise [Fatal]
  - Nausea [Recovering/Resolving]
  - Renal failure [Fatal]
  - Cancer pain [Fatal]
  - Headache [Recovered/Resolved]
  - Off label use [Unknown]
  - Metastases to bone [Fatal]
  - Disturbance in attention [Recovered/Resolved]
  - Vomiting [Recovered/Resolved]

NARRATIVE: CASE EVENT DATE: 202002
